FAERS Safety Report 14393543 (Version 1)
Quarter: 2018Q1

REPORT INFORMATION
  Report Type: Spontaneous
  Country: JP (occurrence: JP)
  Receive Date: 20180116
  Receipt Date: 20180116
  Transmission Date: 20180509
  Serious: Yes (Life-Threatening, Hospitalization, Other)
  Sender: FDA-Public Use
  Company Number: JP-GILEAD-2018-0315102

PATIENT
  Age: 79 Year
  Sex: Female

DRUGS (8)
  1. PROVERA [Concomitant]
     Active Substance: MEDROXYPROGESTERONE ACETATE
  2. DIOVAN [Concomitant]
     Active Substance: VALSARTAN
  3. REBETOL [Concomitant]
     Active Substance: RIBAVIRIN
     Indication: CHRONIC HEPATITIS C
     Dosage: UNK
     Dates: start: 20160428, end: 20160720
  4. SOVALDI [Suspect]
     Active Substance: SOFOSBUVIR
     Indication: CHRONIC HEPATITIS C
     Dosage: 400 MG, UNK
     Route: 065
     Dates: start: 20160428, end: 20160720
  5. PREMARIN [Concomitant]
     Active Substance: ESTROGENS, CONJUGATED
  6. RABEPRAZOLE [Concomitant]
     Active Substance: RABEPRAZOLE
  7. EURODIN                            /00425901/ [Concomitant]
     Active Substance: ESTAZOLAM
  8. AZULFIDINE [Concomitant]
     Active Substance: SULFASALAZINE

REACTIONS (1)
  - Hepatocellular carcinoma [Recovering/Resolving]

NARRATIVE: CASE EVENT DATE: 20170410
